FAERS Safety Report 4963585-2 (Version None)
Quarter: 2006Q2

REPORT INFORMATION
  Report Type: 
  Country: None (occurrence: None)
  Receive Date: 20060405
  Receipt Date: 20060328
  Transmission Date: 20061013
  Serious: Yes (Other)
  Sender: FDA-Public Use
  Company Number: GB-AVENTIS-200613271GDDC

PATIENT
  Age: 51 Year
  Sex: Female

DRUGS (7)
  1. METRONIDAZOLE [Suspect]
     Indication: APPENDICITIS
     Dosage: DOSE: 500 MG TID
     Route: 042
     Dates: start: 20060117, end: 20060119
  2. DETRUSITOL [Concomitant]
     Indication: URINARY INCONTINENCE
     Dosage: DOSE: 4 MG
     Route: 048
     Dates: start: 20050601
  3. CLEXANE [Concomitant]
     Indication: THROMBOSIS PROPHYLAXIS
     Dosage: DOSE: 20 MG
     Route: 058
     Dates: start: 20060117, end: 20060119
  4. CEFTRIAXONE [Concomitant]
     Indication: APPENDICITIS
     Dosage: DOSE: 2 G
     Route: 042
     Dates: start: 20060117, end: 20060119
  5. ACETAMINOPHEN [Concomitant]
     Dosage: DOSE: 1 G
     Route: 048
     Dates: start: 20060117, end: 20060119
  6. DIHYDROCODEINE [Concomitant]
     Dosage: DOSE: 60 MG
     Dates: start: 20060118, end: 20060118
  7. CYCLIZINE [Concomitant]
     Dosage: DOSE: 50 MG
     Dates: start: 20060119, end: 20060119

REACTIONS (3)
  - CONFUSIONAL STATE [None]
  - OCULOGYRATION [None]
  - SOMNOLENCE [None]
